FAERS Safety Report 6330806-3 (Version None)
Quarter: 2009Q3

REPORT INFORMATION
  Report Type: 
  Country: None (occurrence: None)
  Receive Date: 20090827
  Receipt Date: 20090825
  Transmission Date: 20100115
  Serious: Yes (Death, Hospitalization, Other)
  Sender: FDA-Public Use
  Company Number: PHHY2009BR29493

PATIENT
  Age: 78 Year
  Sex: Female

DRUGS (1)
  1. EXELON [Suspect]
     Indication: DEMENTIA ALZHEIMER'S TYPE
     Dosage: 3 MG, QD
     Route: 048
     Dates: start: 20030101

REACTIONS (5)
  - BLOOD GLUCOSE FLUCTUATION [None]
  - CARDIAC FAILURE [None]
  - CONCOMITANT DISEASE AGGRAVATED [None]
  - INFECTION [None]
  - PNEUMONIA [None]
